FAERS Safety Report 7369110-3 (Version None)
Quarter: 2011Q1

REPORT INFORMATION
  Report Type: 
  Country: None (occurrence: None)
  Receive Date: 20110323
  Receipt Date: 20110321
  Transmission Date: 20110831
  Serious: Yes (Death)
  Sender: FDA-Public Use
  Company Number: CA-ABBOTT-11P-028-0713051-00

PATIENT
  Sex: Female

DRUGS (3)
  1. UNKNOWN DRUG FOR CHEMOTHERAPY [Suspect]
     Indication: LYMPHOMA
     Route: 048
     Dates: start: 20110313, end: 20110320
  2. HUMIRA [Suspect]
     Indication: RHEUMATOID ARTHRITIS
     Route: 058
     Dates: start: 20060119, end: 20110320
  3. UNKNOWN ARTHRITIS MEDICATION [Suspect]
     Indication: ARTHRITIS

REACTIONS (2)
  - THROMBOSIS [None]
  - LYMPHOMA [None]
